FAERS Safety Report 9846133 (Version 3)
Quarter: 2014Q2

REPORT INFORMATION
  Report Type: Spontaneous
  Country: US (occurrence: US)
  Receive Date: 20140127
  Receipt Date: 20140508
  Transmission Date: 20141212
  Serious: Yes (Death, Hospitalization, Other)
  Sender: FDA-Public Use
  Company Number: US-GILEAD-2014-0092850

PATIENT
  Sex: Male
  Weight: 88.89 kg

DRUGS (14)
  1. LETAIRIS [Suspect]
     Indication: PULMONARY HYPERTENSION
     Dosage: 5 MG, QD
     Route: 065
     Dates: start: 20130828, end: 20140127
  2. LETAIRIS [Suspect]
     Indication: SCLERODERMA
  3. FLONASE                            /00908302/ [Concomitant]
  4. FUROSEMIDE [Concomitant]
  5. HYDRALAZINE [Concomitant]
  6. LANSOPRAZOLE [Concomitant]
  7. LISINOPRIL [Concomitant]
  8. METOLAZONE [Concomitant]
  9. METOPROLOL [Concomitant]
  10. POTASSIUM CHLORIDE [Concomitant]
  11. ADCIRCA [Concomitant]
  12. TAMSULOSIN [Concomitant]
  13. TREPROSTINIL [Concomitant]
  14. WARFARIN [Concomitant]

REACTIONS (3)
  - Pulmonary hypertension [Fatal]
  - Cor pulmonale [Fatal]
  - Systemic sclerosis [Fatal]
